FAERS Safety Report 14248408 (Version 1)
Quarter: 2017Q4

REPORT INFORMATION
  Report Type: Spontaneous
  Country: US (occurrence: US)
  Receive Date: 20171204
  Receipt Date: 20171204
  Transmission Date: 20180321
  Serious: Yes (Hospitalization, Other)
  Sender: FDA-Public Use
  Company Number: US-PROCTER+GAMBLE-GS17131308

PATIENT
  Age: 21 Year
  Sex: Male

DRUGS (1)
  1. DIPHENHYDRAMINE HCL [Suspect]
     Active Substance: DIPHENHYDRAMINE HYDROCHLORIDE

REACTIONS (25)
  - Gaze palsy [Recovering/Resolving]
  - Hyporesponsive to stimuli [Unknown]
  - Salivary hypersecretion [Unknown]
  - Overdose [Unknown]
  - Mental status changes [Unknown]
  - Reduced facial expression [Unknown]
  - Dysphonia [Unknown]
  - Psychotic disorder [Unknown]
  - Sinus tachycardia [Recovering/Resolving]
  - Flushing [Unknown]
  - Mydriasis [Recovering/Resolving]
  - Drug abuse [Unknown]
  - Hyperhidrosis [Unknown]
  - Dysarthria [Unknown]
  - Muscle rigidity [Recovering/Resolving]
  - Staring [Recovering/Resolving]
  - Discomfort [Unknown]
  - Withdrawal syndrome [Unknown]
  - Postural tremor [Unknown]
  - Seizure [Unknown]
  - Toxicity to various agents [Unknown]
  - Tremor [Recovering/Resolving]
  - Cold sweat [Unknown]
  - Hyperreflexia [Unknown]
  - Electroencephalogram abnormal [Unknown]
